FAERS Safety Report 15747514 (Version 4)
Quarter: 2019Q1

REPORT INFORMATION
  Report Type: Report from Study
  Country: None (occurrence: JP)
  Receive Date: 20181220
  Receipt Date: 20190212
  Transmission Date: 20190417
  Serious: Yes (Disabling)
  Sender: FDA-Public Use
  Company Number: JP-ABBVIE-17P-087-1907252-00

PATIENT
  Age: 54 Year
  Sex: Male
  Weight: 70 kg

DRUGS (12)
  1. DUODOPA [Suspect]
     Active Substance: CARBIDOPA\LEVODOPA
     Dosage: MD: 9.0 ML, CD: 1.9 ML/HR X 16 HRS, ED: 2.4 ML/UNIT X 2 TIMES
     Route: 050
     Dates: start: 20180206
  2. ENTACAPONE. [Concomitant]
     Active Substance: ENTACAPONE
     Indication: VITAMIN SUPPLEMENTATION
  3. DUODOPA [Suspect]
     Active Substance: CARBIDOPA\LEVODOPA
     Dosage: MD: 9 ML, CD: 2.2 ML/HR X 16 HR, ED: 2.4 ML/UNIT X 2
     Route: 050
     Dates: start: 20170124, end: 20171114
  4. DOMPERIDONE [Concomitant]
     Active Substance: DOMPERIDONE
     Indication: PRODUCT USED FOR UNKNOWN INDICATION
     Route: 048
     Dates: end: 20170321
  5. DUODOPA [Suspect]
     Active Substance: CARBIDOPA\LEVODOPA
     Dosage: MD: 9 ML, CD: 2.1 ML/HR X 16 HR, ED: 2.4 ML/UNIT X 2
     Route: 050
     Dates: start: 20171114, end: 20180123
  6. DOMPERIDONE [Concomitant]
     Active Substance: DOMPERIDONE
     Route: 048
     Dates: start: 20180322
  7. ZONISAMIDE. [Concomitant]
     Active Substance: ZONISAMIDE
     Indication: PROPHYLAXIS
     Route: 048
     Dates: start: 20171006
  8. DUODOPA [Suspect]
     Active Substance: CARBIDOPA\LEVODOPA
     Dosage: MD: 9.0 ML, CD: 2.0 ML/HR X 16 HRS, ED: 2.4 ML/UNIT X 2 TIMES
     Route: 050
     Dates: start: 20180123, end: 20180206
  9. PYRIDOXAL PHOSPHATE [Concomitant]
     Active Substance: PYRIDOXAL PHOSPHATE
     Indication: PRODUCT USED FOR UNKNOWN INDICATION
     Route: 048
  10. ENTACAPONE. [Concomitant]
     Active Substance: ENTACAPONE
     Indication: PARKINSON^S DISEASE
     Route: 048
     Dates: start: 20180508
  11. DUODOPA [Suspect]
     Active Substance: CARBIDOPA\LEVODOPA
     Indication: PARKINSON^S DISEASE
     Dosage: MD: 9 ML, CD: 2.3 ML/HR X 16 HR, ED: 2.4 ML/UNIT X 2
     Route: 050
     Dates: start: 20161026, end: 20170124
  12. CABERGOLINE. [Concomitant]
     Active Substance: CABERGOLINE
     Indication: PARKINSON^S DISEASE
     Route: 048
     Dates: start: 20170823, end: 20170825

REACTIONS (12)
  - Dyskinesia [Not Recovered/Not Resolved]
  - Limb discomfort [Recovered/Resolved with Sequelae]
  - Pain in extremity [Recovered/Resolved]
  - Stoma site pain [Recovered/Resolved]
  - Back pain [Recovered/Resolved]
  - Feeling abnormal [Recovered/Resolved]
  - Stoma site discharge [Recovered/Resolved]
  - Insomnia [Not Recovered/Not Resolved]
  - Sinusitis [Recovered/Resolved]
  - Gait inability [Recovered/Resolved with Sequelae]
  - Device material issue [Not Recovered/Not Resolved]
  - Constipation [Recovering/Resolving]

NARRATIVE: CASE EVENT DATE: 20161206
